FAERS Safety Report 21456439 (Version 2)
Quarter: 2022Q4

REPORT INFORMATION
  Report Type: Spontaneous
  Country: US (occurrence: None)
  Receive Date: 20221014
  Receipt Date: 20221017
  Transmission Date: 20230113
  Serious: Yes (Hospitalization)
  Sender: FDA-Public Use
  Company Number: US-ROCHE-3199256

PATIENT
  Sex: Female

DRUGS (3)
  1. ACTEMRA [Suspect]
     Active Substance: TOCILIZUMAB
     Indication: Polymyalgia rheumatica
     Dosage: (STRENGTH: 162MG/0.9M)
     Route: 058
     Dates: start: 20211225
  2. ACTEMRA [Suspect]
     Active Substance: TOCILIZUMAB
  3. MORPHINE [Concomitant]
     Active Substance: MORPHINE

REACTIONS (3)
  - Burning sensation [Unknown]
  - Feeling abnormal [Unknown]
  - Off label use [Unknown]
